FAERS Safety Report 21207945 (Version 4)
Quarter: 2023Q2

REPORT INFORMATION
  Report Type: Spontaneous
  Country: JP (occurrence: JP)
  Receive Date: 20220812
  Receipt Date: 20230619
  Transmission Date: 20230721
  Serious: Yes (Hospitalization, Other)
  Sender: FDA-Public Use
  Company Number: JP-OTSUKA-2022_040528

PATIENT
  Age: 34 Year
  Sex: Male
  Weight: 54.2 kg

DRUGS (17)
  1. BUSULFEX [Suspect]
     Active Substance: BUSULFAN
     Indication: Allogenic stem cell transplantation
     Dosage: 3.2MG/KG
     Route: 065
  2. BUSULFEX [Suspect]
     Active Substance: BUSULFAN
     Indication: Premedication
  3. CYCLOPHOSPHAMIDE [Suspect]
     Active Substance: CYCLOPHOSPHAMIDE
     Indication: Allogenic stem cell transplantation
     Dosage: 60MG/KG
     Route: 065
  4. CYCLOPHOSPHAMIDE [Suspect]
     Active Substance: CYCLOPHOSPHAMIDE
     Indication: Premedication
     Dosage: 500MG/M2
     Route: 041
  5. CYCLOPHOSPHAMIDE [Suspect]
     Active Substance: CYCLOPHOSPHAMIDE
     Dosage: 750MG/M2
     Route: 041
  6. CYCLOPHOSPHAMIDE [Suspect]
     Active Substance: CYCLOPHOSPHAMIDE
     Dosage: 1000MG/M2
     Route: 041
  7. CYCLOPHOSPHAMIDE [Suspect]
     Active Substance: CYCLOPHOSPHAMIDE
     Dosage: 1000MG/M2
     Route: 041
  8. CYCLOPHOSPHAMIDE [Suspect]
     Active Substance: CYCLOPHOSPHAMIDE
     Dosage: 500MG/M2
     Route: 041
  9. CYCLOPHOSPHAMIDE [Suspect]
     Active Substance: CYCLOPHOSPHAMIDE
     Dosage: 500MG/M2
     Route: 041
  10. CYCLOPHOSPHAMIDE [Suspect]
     Active Substance: CYCLOPHOSPHAMIDE
     Dosage: 500MG/M2
     Route: 041
  11. CYCLOPHOSPHAMIDE [Suspect]
     Active Substance: CYCLOPHOSPHAMIDE
     Dosage: UNK
     Route: 041
  12. CYCLOSPORINE [Suspect]
     Active Substance: CYCLOSPORINE
     Indication: Prophylaxis against graft versus host disease
     Dosage: 3 MG/KG/DAY (TARGET CONCENTRATION, 350 TO 450 MCG/ML)
     Route: 041
  13. CYCLOSPORINE [Suspect]
     Active Substance: CYCLOSPORINE
     Dosage: 10 MG/DAY
     Route: 048
  14. CYCLOSPORINE [Suspect]
     Active Substance: CYCLOSPORINE
     Dosage: 150 MG/DAY (TARGET TROUGH CONCENTRATION, 250 NG/ML)
     Route: 048
  15. METHOTREXATE [Suspect]
     Active Substance: METHOTREXATE
     Indication: Prophylaxis against graft versus host disease
     Dosage: SHORT-TERM, 7MG/M2, DAY6
     Route: 065
  16. METHOTREXATE [Suspect]
     Active Substance: METHOTREXATE
     Dosage: SHORT-TERM, 10MG/M2, DAY1
     Route: 065
  17. METHOTREXATE [Suspect]
     Active Substance: METHOTREXATE
     Dosage: SHORT-TERM, 7MG/M2, DAY3
     Route: 065

REACTIONS (6)
  - Obliterative bronchiolitis [Recovering/Resolving]
  - Lung transplant [Recovering/Resolving]
  - Pneumomediastinum [Recovering/Resolving]
  - Pneumothorax [Recovering/Resolving]
  - Interstitial lung disease [Recovered/Resolved with Sequelae]
  - Respiratory failure [Recovering/Resolving]

NARRATIVE: CASE EVENT DATE: 20210101
